FAERS Safety Report 9706799 (Version 1)
Quarter: 2013Q4

REPORT INFORMATION
  Report Type: Report from Study
  Country: US (occurrence: US)
  Receive Date: 20131125
  Receipt Date: 20131125
  Transmission Date: 20140711
  Serious: Yes (Other)
  Sender: FDA-Public Use
  Company Number: PHEH2013US024439

PATIENT
  Sex: Female
  Weight: 59.41 kg

DRUGS (8)
  1. TOBI [Suspect]
     Indication: CYSTIC FIBROSIS
     Dosage: 300 MG, BID
  2. TOBI [Suspect]
     Indication: PSEUDOMONAS INFECTION
  3. PROVENTIL [Concomitant]
     Dosage: UNK UKN, UNK
  4. ADVAIR [Concomitant]
     Dosage: UNK UKN, UNK
  5. PULMOZYME [Concomitant]
     Dosage: UNK UKN, UNK
  6. PREVACID [Concomitant]
     Dosage: UNK UKN, UNK
  7. PEPCID [Concomitant]
     Dosage: UNK UKN, UNK
  8. ANTIHYPERTENSIVES [Concomitant]
     Indication: BLOOD PRESSURE ABNORMAL
     Dosage: UNK UKN, UNK

REACTIONS (2)
  - Balance disorder [Not Recovered/Not Resolved]
  - Dizziness [Not Recovered/Not Resolved]
